FAERS Safety Report 13267887 (Version 1)
Quarter: 2017Q1

REPORT INFORMATION
  Report Type: Spontaneous
  Country: US (occurrence: US)
  Receive Date: 20170224
  Receipt Date: 20170224
  Transmission Date: 20170428
  Serious: No
  Sender: FDA-Public Use
  Company Number: None

PATIENT
  Age: 73 Year
  Sex: Female
  Weight: 92.6 kg

DRUGS (1)
  1. INTRON A [Suspect]
     Active Substance: INTERFERON ALFA-2B
     Dates: end: 20131202

REACTIONS (5)
  - Skin lesion [None]
  - Condition aggravated [None]
  - Gamma-glutamyltransferase increased [None]
  - Aspartate aminotransferase abnormal [None]
  - Liver function test increased [None]

NARRATIVE: CASE EVENT DATE: 20131030
